FAERS Safety Report 16844383 (Version 3)
Quarter: 2019Q4

REPORT INFORMATION
  Report Type: Spontaneous
  Country: US (occurrence: US)
  Receive Date: 20190924
  Receipt Date: 20191025
  Transmission Date: 20200122
  Serious: Yes (Hospitalization, Disabling, Other)
  Sender: FDA-Public Use
  Company Number: US-ASTRAZENECA-2019SF24167

PATIENT
  Age: 60 Year
  Sex: Female
  Weight: 129 kg

DRUGS (10)
  1. SINGULAIR [Concomitant]
     Active Substance: MONTELUKAST SODIUM
  2. CLARITIN [Concomitant]
     Active Substance: LORATADINE
  3. CLOPIDOGREL [Concomitant]
     Active Substance: CLOPIDOGREL BISULFATE
  4. ALBUTEROL. [Concomitant]
     Active Substance: ALBUTEROL
     Dosage: 2.5/3 ML AS REQUIRED
  5. FASENRA [Suspect]
     Active Substance: BENRALIZUMAB
     Indication: ASTHMA
     Route: 058
     Dates: start: 20190707, end: 20190707
  6. FARXIGA [Suspect]
     Active Substance: DAPAGLIFLOZIN PROPANEDIOL
     Route: 048
  7. DULERA [Concomitant]
     Active Substance: FORMOTEROL FUMARATE DIHYDRATE\MOMETASONE FUROATE
     Dosage: 200/5 2 PUFFS TWO TIMES A DAY
  8. CRESTOR [Concomitant]
     Active Substance: ROSUVASTATIN CALCIUM
  9. BUDESONIDE. [Concomitant]
     Active Substance: BUDESONIDE
     Dosage: 0.5/2 ML AS REQUIRED
  10. SYNTHROID [Concomitant]
     Active Substance: LEVOTHYROXINE SODIUM

REACTIONS (3)
  - Interstitial lung disease [Unknown]
  - Acute interstitial pneumonitis [Not Recovered/Not Resolved]
  - Adverse drug reaction [Unknown]

NARRATIVE: CASE EVENT DATE: 20190709
